FAERS Safety Report 10009613 (Version 2)
Quarter: 2014Q1

REPORT INFORMATION
  Report Type: Spontaneous
  Country: US (occurrence: US)
  Receive Date: 20140312
  Receipt Date: 20140312
  Transmission Date: 20141002
  Serious: No
  Sender: FDA-Public Use
  Company Number: US-INCYTE CORPORATION-2012IN002087

PATIENT
  Age: 68 Year
  Sex: Female
  Weight: 64.4 kg

DRUGS (14)
  1. JAKAFI [Suspect]
     Indication: MYELOFIBROSIS
     Dosage: 20 MG, BID
     Route: 048
     Dates: start: 2011
  2. JAKAFI [Suspect]
     Dosage: 20 MG, BID
     Route: 048
  3. BABY ASPIRIN [Suspect]
     Dosage: 81 MG, QD
     Route: 048
  4. VITAMIN C [Concomitant]
     Dosage: 500 MG, QD
     Route: 048
  5. ATENOLOL [Concomitant]
     Dosage: 25 MG, QD
     Route: 048
  6. ZYRTEC [Concomitant]
     Dosage: 10 MG, QD
     Route: 048
  7. ULORIC [Concomitant]
     Dosage: 40 MG, QD
     Route: 048
  8. VALIUM [Concomitant]
     Indication: ANXIETY
     Dosage: 1 DF, QHS, PRN
     Route: 048
  9. GRAPE SEED EXTRACT [Concomitant]
     Dosage: 100 MG, QD
     Route: 048
  10. VICOPROFEN [Concomitant]
     Dosage: 1 DF, Q4H, PRN
     Route: 048
  11. PROBIOTIC [Concomitant]
     Route: 048
  12. COMPAZINE [Concomitant]
     Dosage: 1 DF, Q6H, PRN
     Route: 048
  13. VEGETABLE LAXATIVE [Concomitant]
     Dosage: , QD
     Route: 048
  14. VITAMIN E [Concomitant]
     Dosage: 400 UT, QD
     Route: 048

REACTIONS (20)
  - Fatigue [Unknown]
  - Cough [Recovering/Resolving]
  - Upper respiratory tract congestion [Recovering/Resolving]
  - Malaise [Recovering/Resolving]
  - Insomnia [Recovering/Resolving]
  - Dyspnoea exertional [Unknown]
  - Constipation [Unknown]
  - Anxiety [Unknown]
  - Depression [Unknown]
  - Oedema peripheral [Unknown]
  - Pyrexia [Unknown]
  - Splenomegaly [Unknown]
  - Pain [Unknown]
  - Drug dose omission [Not Recovered/Not Resolved]
  - Decreased appetite [Recovered/Resolved]
  - Fall [Recovered/Resolved]
  - Asthenia [Recovered/Resolved]
  - Dizziness [Recovered/Resolved]
  - Contusion [Unknown]
  - Anaemia [Unknown]
